FAERS Safety Report 10828417 (Version 1)
Quarter: 2015Q1

REPORT INFORMATION
  Report Type: Report from Study
  Country: US (occurrence: US)
  Receive Date: 20150219
  Receipt Date: 20150219
  Transmission Date: 20150721
  Serious: No
  Sender: FDA-Public Use
  Company Number: US-ABBVIE-14P-163-1186406-00

PATIENT
  Age: 26 Year
  Sex: Female

DRUGS (8)
  1. GABAPENTIN. [Concomitant]
     Active Substance: GABAPENTIN
     Indication: FIBROMYALGIA
  2. FOLIC ACID. [Concomitant]
     Active Substance: FOLIC ACID
     Indication: CROHN^S DISEASE
  3. HUMIRA [Suspect]
     Active Substance: ADALIMUMAB
     Indication: CROHN^S DISEASE
     Dates: start: 20131119
  4. EFFEXOR [Concomitant]
     Active Substance: VENLAFAXINE HYDROCHLORIDE
     Indication: DEPRESSION
     Dosage: IN AM
  5. EFFEXOR [Concomitant]
     Active Substance: VENLAFAXINE HYDROCHLORIDE
     Dosage: IN PM
  6. LORAZEPAM. [Concomitant]
     Active Substance: LORAZEPAM
     Indication: ANXIETY
     Dosage: CAN TAKE UPTO SIX PER DAY
  7. ZANAFLEX [Concomitant]
     Active Substance: TIZANIDINE HYDROCHLORIDE
     Indication: FIBROMYALGIA
     Dosage: THREE IN ONE DAY
  8. METHOTREXATE [Concomitant]
     Active Substance: METHOTREXATE
     Indication: PRODUCT USED FOR UNKNOWN INDICATION
     Dosage: EVEY MONDAY

REACTIONS (7)
  - Nasal congestion [Unknown]
  - Bronchial disorder [Recovering/Resolving]
  - Sputum discoloured [Recovering/Resolving]
  - Productive cough [Recovering/Resolving]
  - Pharyngitis streptococcal [Recovering/Resolving]
  - Hypersensitivity [Unknown]
  - Cough [Unknown]

NARRATIVE: CASE EVENT DATE: 2013
